FAERS Safety Report 4309439-6 (Version None)
Quarter: 2004Q1

REPORT INFORMATION
  Report Type: 
  Country: None (occurrence: None)
  Receive Date: 20040301
  Receipt Date: 20040217
  Transmission Date: 20041129
  Serious: Yes (Life-Threatening, Hospitalization)
  Sender: FDA-Public Use
  Company Number: 2004002842

PATIENT
  Age: 61 Year
  Sex: Female

DRUGS (4)
  1. LIPITOR [Suspect]
     Indication: HYPERLIPIDAEMIA
     Dosage: 10 MG (DAILY), ORAL
     Dates: start: 20030120, end: 20031111
  2. FENOFIBRATE [Suspect]
     Indication: HYPERLIPIDAEMIA
     Dosage: (DAILY), ORAL
     Route: 048
     Dates: start: 20030120, end: 20030601
  3. GLIMEPIRIDE [Suspect]
     Indication: ILL-DEFINED DISORDER
     Dosage: 1 MG (DAILY), ORAL
     Route: 048
     Dates: start: 20031111, end: 20031222
  4. BENZBROMARONE (BENZBROMARONE) [Suspect]
     Indication: HYPERURICAEMIA
     Dosage: 50 MG (DAILY), ORAL
     Dates: start: 20031111, end: 20031222

REACTIONS (2)
  - HEPATITIS [None]
  - PROTHROMBIN TIME PROLONGED [None]
